FAERS Safety Report 24093951 (Version 1)
Quarter: 2024Q3

REPORT INFORMATION
  Report Type: Spontaneous
  Country: FR (occurrence: FR)
  Receive Date: 20240716
  Receipt Date: 20240716
  Transmission Date: 20241017
  Serious: Yes (Disabling)
  Sender: NOVO NORDISK
  Company Number: None

PATIENT
  Age: 23 Year
  Sex: Female
  Weight: 49 kg

DRUGS (2)
  1. GLUCAGEN HYPOKIT [Suspect]
     Active Substance: GLUCAGON HYDROCHLORIDE
     Indication: Gastrointestinal hypermotility
  2. GLUCAGEN HYPOKIT [Suspect]
     Active Substance: GLUCAGON HYDROCHLORIDE
     Indication: Magnetic resonance imaging pelvic
     Dosage: 1 DF, QD
     Route: 030
     Dates: start: 20240605, end: 20240605

REACTIONS (6)
  - Asthenia [Recovering/Resolving]
  - Sudden onset of sleep [Recovered/Resolved]
  - Vomiting [Recovered/Resolved]
  - Hot flush [Recovered/Resolved]
  - Hyperhidrosis [Recovered/Resolved]
  - Vertigo [Recovered/Resolved]

NARRATIVE: CASE EVENT DATE: 20240605
